FAERS Safety Report 24229785 (Version 2)
Quarter: 2025Q3

REPORT INFORMATION
  Report Type: Report from Study
  Country: CA (occurrence: CA)
  Receive Date: 20240820
  Receipt Date: 20250901
  Transmission Date: 20251021
  Serious: Yes (Other)
  Sender: SANDOZ
  Company Number: CA-SANDOZ-SDZ2023CA019868

PATIENT
  Sex: Male

DRUGS (1)
  1. HYRIMOZ [Suspect]
     Active Substance: ADALIMUMAB-ADAZ
     Indication: Crohn^s disease
     Dosage: 40 MG / 0.8 ML; WEEKLY
     Route: 058
     Dates: start: 20220307

REACTIONS (5)
  - Retinal detachment [Unknown]
  - Deafness [Unknown]
  - Abdominal pain [Unknown]
  - General physical health deterioration [Unknown]
  - Off label use [Unknown]
